FAERS Safety Report 21988352 (Version 2)
Quarter: 2023Q1

REPORT INFORMATION
  Report Type: Report from Study
  Country: US (occurrence: US)
  Receive Date: 20230214
  Receipt Date: 20230216
  Transmission Date: 20230418
  Serious: Yes (Hospitalization)
  Sender: FDA-Public Use
  Company Number: US-ABBVIE-4306720

PATIENT
  Age: 78 Year
  Sex: Male

DRUGS (1)
  1. IMBRUVICA [Suspect]
     Active Substance: IBRUTINIB
     Indication: Chronic lymphocytic leukaemia
     Route: 048

REACTIONS (7)
  - Speech disorder [Unknown]
  - Pneumonia [Unknown]
  - Pain [Unknown]
  - Atrial fibrillation [Unknown]
  - Illness [Unknown]
  - Arthralgia [Unknown]
  - Haematochezia [Unknown]

NARRATIVE: CASE EVENT DATE: 20230106
